FAERS Safety Report 10040151 (Version 2)
Quarter: 2014Q2

REPORT INFORMATION
  Report Type: Spontaneous
  Country: TR (occurrence: TR)
  Receive Date: 20140326
  Receipt Date: 20140429
  Transmission Date: 20141212
  Serious: Yes (Death)
  Sender: FDA-Public Use
  Company Number: TR-CELGENEUS-161-21880-14033187

PATIENT
  Age: 39 Year
  Sex: Female

DRUGS (2)
  1. REVLIMID [Suspect]
     Indication: PLASMA CELL LEUKAEMIA
     Route: 048
     Dates: start: 201001, end: 20101012
  2. DEXAMETHASONE [Concomitant]
     Indication: PLASMA CELL LEUKAEMIA
     Route: 065

REACTIONS (1)
  - Plasma cell leukaemia [Fatal]
